FAERS Safety Report 12845339 (Version 1)
Quarter: 2016Q4

REPORT INFORMATION
  Report Type: Spontaneous
  Country: US (occurrence: US)
  Receive Date: 20161013
  Receipt Date: 20161013
  Transmission Date: 20170207
  Serious: No
  Sender: FDA-Public Use
  Company Number: US-JAZZ-2016-US-013922

PATIENT
  Sex: Female

DRUGS (51)
  1. XYREM [Suspect]
     Active Substance: SODIUM OXYBATE
     Indication: NARCOLEPSY
     Dosage: 2.25 G, BID
     Route: 048
     Dates: start: 201305, end: 201305
  2. XYREM [Suspect]
     Active Substance: SODIUM OXYBATE
     Dosage: 3.5 G, FIRST DOSE
     Route: 048
     Dates: start: 201411, end: 2015
  3. ASPIRIN. [Concomitant]
     Active Substance: ASPIRIN
  4. DIAZEPAM. [Concomitant]
     Active Substance: DIAZEPAM
  5. ONDANSETRON HCL [Concomitant]
     Active Substance: ONDANSETRON HYDROCHLORIDE
  6. PROVENTIL HFA [Concomitant]
     Active Substance: ALBUTEROL SULFATE
  7. SYMBICORT [Concomitant]
     Active Substance: BUDESONIDE\FORMOTEROL FUMARATE DIHYDRATE
  8. BACLOFEN. [Concomitant]
     Active Substance: BACLOFEN
  9. SENNOSIDES A+B [Concomitant]
     Active Substance: SENNOSIDES A AND B
  10. TOPIRAMATE. [Concomitant]
     Active Substance: TOPIRAMATE
  11. TRAZODONE [Concomitant]
     Active Substance: TRAZODONE HYDROCHLORIDE
  12. BENZOYL PEROXIDE. [Concomitant]
     Active Substance: BENZOYL PEROXIDE
  13. BISACODYL. [Concomitant]
     Active Substance: BISACODYL
  14. DOXYCYCLINE MONOHYDRATE [Concomitant]
     Active Substance: DOXYCYCLINE
  15. VITAMIN B12 [Concomitant]
     Active Substance: CYANOCOBALAMIN
  16. XYREM [Suspect]
     Active Substance: SODIUM OXYBATE
     Dosage: 3 G, BID
     Route: 048
     Dates: start: 201512
  17. TERBINAFINE HCL [Suspect]
     Active Substance: TERBINAFINE HYDROCHLORIDE
     Indication: PRODUCT USED FOR UNKNOWN INDICATION
     Route: 048
  18. IBUPROFEN. [Concomitant]
     Active Substance: IBUPROFEN
  19. METHENAMINE HIPPURATE. [Concomitant]
     Active Substance: METHENAMINE HIPPURATE
  20. SUMATRIPTAN SUCCINATE. [Concomitant]
     Active Substance: SUMATRIPTAN SUCCINATE
  21. CAPSAICIN. [Concomitant]
     Active Substance: CAPSAICIN
  22. REBIF [Concomitant]
     Active Substance: INTERFERON BETA-1A
  23. VITAMIN D [Concomitant]
     Active Substance: CHOLECALCIFEROL
  24. CARBAMAZEPINE. [Concomitant]
     Active Substance: CARBAMAZEPINE
  25. DIMETHYL FUMARATE [Concomitant]
     Active Substance: DIMETHYL FUMARATE
  26. DOCUSATE SODIUM. [Concomitant]
     Active Substance: DOCUSATE SODIUM
  27. CYANOCOBALAMIN. [Concomitant]
     Active Substance: CYANOCOBALAMIN
  28. HYDROXYZINE [Concomitant]
     Active Substance: HYDROXYZINE\HYDROXYZINE HYDROCHLORIDE
  29. NITROFURANTOIN. [Concomitant]
     Active Substance: NITROFURANTOIN
  30. UREA. [Concomitant]
     Active Substance: UREA
  31. XYREM [Suspect]
     Active Substance: SODIUM OXYBATE
     Dosage: 3 G, SECOND DOSE
     Route: 048
     Dates: start: 201411, end: 2015
  32. LOPERAMIDE [Concomitant]
     Active Substance: LOPERAMIDE
  33. CRANBERRY CONCENTRATE [Concomitant]
     Active Substance: CRANBERRY CONCENTRATE
  34. FLUOXETINE HCL [Concomitant]
     Active Substance: FLUOXETINE HYDROCHLORIDE
  35. MODAFINIL. [Concomitant]
     Active Substance: MODAFINIL
  36. OXYBUTYNIN [Concomitant]
     Active Substance: OXYBUTYNIN
  37. FORADIL [Concomitant]
     Active Substance: FORMOTEROL FUMARATE
  38. CETIRIZINE [Concomitant]
     Active Substance: CETIRIZINE HYDROCHLORIDE
  39. CLOTRIMAZOLE. [Concomitant]
     Active Substance: CLOTRIMAZOLE
  40. HYDROCORTISONE. [Concomitant]
     Active Substance: HYDROCORTISONE
  41. LORATADINE. [Concomitant]
     Active Substance: LORATADINE
  42. MAGNESIUM CITRATE. [Concomitant]
     Active Substance: MAGNESIUM CITRATE
  43. MELOXICAM. [Concomitant]
     Active Substance: MELOXICAM
  44. POLYETHYLENE GLYCOL [Concomitant]
     Active Substance: POLYETHYLENE GLYCOLS
  45. SARNA SENSITIVE ANTIBACTERIAL [Concomitant]
  46. TOPAMAX [Concomitant]
     Active Substance: TOPIRAMATE
  47. TRIAMCINOLONE [Concomitant]
     Active Substance: TRIAMCINOLONE
  48. XYREM [Suspect]
     Active Substance: SODIUM OXYBATE
     Dosage: DOSE ADJUSTMENTS
     Route: 048
     Dates: start: 201305, end: 201411
  49. BOTOX COSMETIC [Concomitant]
     Active Substance: ONABOTULINUMTOXINA
  50. METRONIDAZOLE. [Concomitant]
     Active Substance: METRONIDAZOLE
  51. TIZANIDINE HCL [Concomitant]
     Active Substance: TIZANIDINE HYDROCHLORIDE

REACTIONS (7)
  - Feeling abnormal [Not Recovered/Not Resolved]
  - Malaise [Unknown]
  - Skin disorder [Unknown]
  - Drug ineffective [Unknown]
  - Cystitis [Not Recovered/Not Resolved]
  - Depression [Recovering/Resolving]
  - Pain [Unknown]

NARRATIVE: CASE EVENT DATE: 2016
